FAERS Safety Report 20128828 (Version 1)
Quarter: 2021Q4

REPORT INFORMATION
  Report Type: Report from Study
  Country: CA (occurrence: CA)
  Receive Date: 20211130
  Receipt Date: 20211130
  Transmission Date: 20220303
  Serious: Yes (Hospitalization)
  Sender: FDA-Public Use
  Company Number: CA-UCBSA-2021039856

PATIENT
  Sex: Female

DRUGS (1)
  1. BRIVARACETAM [Suspect]
     Active Substance: BRIVARACETAM
     Indication: Partial seizures
     Dosage: 25 MILLIGRAM, ONCE DAILY (QD)

REACTIONS (3)
  - Seizure [Not Recovered/Not Resolved]
  - Off label use [Unknown]
  - Underdose [Unknown]
